FAERS Safety Report 10015133 (Version 1)
Quarter: 2014Q1

REPORT INFORMATION
  Report Type: Spontaneous
  Country: US (occurrence: US)
  Receive Date: 20140317
  Receipt Date: 20140317
  Transmission Date: 20141002
  Serious: No
  Sender: FDA-Public Use
  Company Number: US-GILEAD-2012-0057517

PATIENT
  Sex: Female

DRUGS (1)
  1. LETAIRIS [Suspect]
     Indication: PRODUCT USED FOR UNKNOWN INDICATION
     Dosage: 5 MG, UNK
     Route: 048
     Dates: start: 201206, end: 20120625

REACTIONS (5)
  - Eye discharge [Unknown]
  - Eyelid margin crusting [Unknown]
  - Malaise [Unknown]
  - Feeling abnormal [Unknown]
  - Oedema [Unknown]
